FAERS Safety Report 10083749 (Version 1)
Quarter: 2014Q2

REPORT INFORMATION
  Report Type: Spontaneous
  Country: KR (occurrence: KR)
  Receive Date: 20140417
  Receipt Date: 20140417
  Transmission Date: 20141212
  Serious: Yes (Other)
  Sender: FDA-Public Use
  Company Number: PHHY2014KR044325

PATIENT
  Age: 57 Year
  Sex: Female

DRUGS (5)
  1. IMATINIB [Suspect]
     Indication: LYMPHOMA
  2. IDARUBICIN [Suspect]
     Indication: LYMPHOMA
  3. FLUDARABINE [Concomitant]
  4. MITOXANTRONE [Concomitant]
  5. DEXAMETHASONE [Concomitant]

REACTIONS (2)
  - Acute myeloid leukaemia [Unknown]
  - Second primary malignancy [Unknown]
